FAERS Safety Report 4380209-6 (Version None)
Quarter: 2004Q2

REPORT INFORMATION
  Report Type: 
  Country: None (occurrence: None)
  Receive Date: 20040601
  Receipt Date: 20040421
  Transmission Date: 20050107
  Serious: Yes (Disabling)
  Sender: FDA-Public Use
  Company Number: WAES 0404USA01968

PATIENT
  Age: 75 Year
  Sex: Male

DRUGS (6)
  1. ZETIA [Suspect]
     Indication: HYPERCHOLESTEROLAEMIA
     Dosage: 10 MG/DAILY/PO
     Route: 048
     Dates: start: 20031201, end: 20040407
  2. ASPIRIN [Concomitant]
  3. ATENOLOL [Concomitant]
  4. FOLIC ACID [Concomitant]
  5. NIACIN [Concomitant]
  6. VITAMINS (UNSPECIFIED) [Concomitant]

REACTIONS (1)
  - MYALGIA [None]
